FAERS Safety Report 5444956-7 (Version None)
Quarter: 2007Q3

REPORT INFORMATION
  Report Type: 
  Country: None (occurrence: None)
  Receive Date: 20070906
  Receipt Date: 20070827
  Transmission Date: 20080115
  Serious: Yes (Other)
  Sender: FDA-Public Use
  Company Number: BR-ROCHE-513385

PATIENT
  Age: 32 Year
  Sex: Female

DRUGS (1)
  1. NAPROSYN [Suspect]
     Dosage: REPORTED INDICATION: SWELLING OF FINGERS, PAIN ON FINGERS.
     Route: 048
     Dates: start: 20070804, end: 20070808

REACTIONS (3)
  - APNOEA [None]
  - DYSPNOEA [None]
  - INAPPROPRIATE AFFECT [None]
